FAERS Safety Report 4837827-8 (Version None)
Quarter: 2005Q4

REPORT INFORMATION
  Report Type: 
  Country: None (occurrence: None)
  Receive Date: 20051128
  Receipt Date: 20051117
  Transmission Date: 20060501
  Serious: Yes (Hospitalization, Other)
  Sender: FDA-Public Use
  Company Number: US-MERCK-0511USA03246

PATIENT
  Sex: Male
  Weight: 90 kg

DRUGS (2)
  1. VIOXX [Suspect]
     Route: 048
     Dates: start: 20010101, end: 20050101
  2. [THERAPY UNSPECIFIED] [Concomitant]
     Route: 065

REACTIONS (4)
  - CARDIOVASCULAR DISORDER [None]
  - CEREBROVASCULAR ACCIDENT [None]
  - CORONARY ARTERY DISEASE [None]
  - GASTROINTESTINAL HAEMORRHAGE [None]
